FAERS Safety Report 8889912 (Version 2)
Quarter: 2013Q2

REPORT INFORMATION
  Report Type: Spontaneous
  Country: US (occurrence: US)
  Receive Date: 20121107
  Receipt Date: 20130531
  Transmission Date: 20140414
  Serious: Yes (Other)
  Sender: FDA-Public Use
  Company Number: US-FRI-1000039874

PATIENT
  Age: 39 Year
  Sex: Male
  Weight: 88.64 kg

DRUGS (7)
  1. VIIBRYD [Suspect]
     Indication: DEPRESSION
     Dosage: 40 MG
     Route: 048
     Dates: start: 20120603, end: 20120724
  2. TRAMADOL ER [Interacting]
     Indication: PAIN
     Dosage: 200 MG
     Route: 048
     Dates: start: 20101020, end: 20120723
  3. TRAMADOL [Interacting]
     Indication: PAIN
     Dosage: 100 MG
     Route: 048
     Dates: start: 20101020, end: 20120723
  4. GABAPENTIN [Concomitant]
  5. CLONAZEPAM [Concomitant]
  6. FLEXERIL [Concomitant]
     Indication: BACK PAIN
     Dates: start: 2011
  7. TRAZODONE [Concomitant]
     Indication: INSOMNIA

REACTIONS (10)
  - Suicidal ideation [Recovered/Resolved]
  - Hyponatraemia [Recovered/Resolved]
  - Anger [Recovered/Resolved]
  - Headache [Recovered/Resolved]
  - Drug interaction [Recovered/Resolved]
  - Tremor [Recovered/Resolved]
  - Diarrhoea [Recovered/Resolved]
  - Restlessness [Recovered/Resolved]
  - Dizziness [Recovered/Resolved]
  - Hallucination [Recovered/Resolved]
